FAERS Safety Report 13163839 (Version 1)
Quarter: 2017Q1

REPORT INFORMATION
  Report Type: Spontaneous
  Country: US (occurrence: US)
  Receive Date: 20170130
  Receipt Date: 20170130
  Transmission Date: 20170428
  Serious: No
  Sender: FDA-Public Use
  Company Number: US-AMGEN-USASP2017007726

PATIENT
  Age: 70 Year
  Sex: Male

DRUGS (3)
  1. ENBREL [Suspect]
     Active Substance: ETANERCEPT
     Indication: PSORIATIC ARTHROPATHY
     Dosage: UNK
     Route: 065
     Dates: start: 2015
  2. ENBREL [Suspect]
     Active Substance: ETANERCEPT
     Indication: PSORIASIS
     Dosage: 50 MG, Q2WK
     Route: 065
  3. MILK THISTLE [Concomitant]
     Active Substance: MILK THISTLE
     Dosage: UNK

REACTIONS (7)
  - Chest discomfort [Unknown]
  - Underdose [Unknown]
  - Off label use [Unknown]
  - Middle ear effusion [Unknown]
  - Sinusitis [Unknown]
  - Dizziness [Not Recovered/Not Resolved]
  - Anxiety [Unknown]

NARRATIVE: CASE EVENT DATE: 201610
